FAERS Safety Report 15265230 (Version 2)
Quarter: 2018Q4

REPORT INFORMATION
  Report Type: Spontaneous
  Country: US (occurrence: US)
  Receive Date: 20180810
  Receipt Date: 20181117
  Transmission Date: 20190204
  Serious: No
  Sender: FDA-Public Use
  Company Number: US-MYLANLABS-2018M1060966

PATIENT
  Age: 56 Year
  Sex: Female
  Weight: 70.76 kg

DRUGS (4)
  1. EVAMIST [Concomitant]
     Active Substance: ESTRADIOL
     Indication: HOT FLUSH
     Dosage: UNK
     Route: 065
     Dates: start: 2016, end: 20180725
  2. ELESTRIN [Suspect]
     Active Substance: ESTRADIOL
     Dosage: UNK, 1 PUMPS GEL QD
     Route: 061
     Dates: end: 20180804
  3. ELESTRIN [Suspect]
     Active Substance: ESTRADIOL
     Indication: HOT FLUSH
     Dosage: UNK, 1 PUMPS GEL QD
     Route: 061
     Dates: start: 20180726, end: 20180728
  4. ESCITALOPRAM [Concomitant]
     Active Substance: ESCITALOPRAM OXALATE
     Indication: MOOD SWINGS
     Dosage: USING FROM LAST 15 YEARS

REACTIONS (7)
  - Headache [Recovered/Resolved]
  - Urticaria [Not Recovered/Not Resolved]
  - Underdose [Recovered/Resolved]
  - Pruritus generalised [Not Recovered/Not Resolved]
  - Paraesthesia [Unknown]
  - Erythema [Not Recovered/Not Resolved]
  - Rash [Not Recovered/Not Resolved]

NARRATIVE: CASE EVENT DATE: 20180726
